FAERS Safety Report 25465451 (Version 1)
Quarter: 2025Q2

REPORT INFORMATION
  Report Type: Spontaneous
  Country: ES (occurrence: ES)
  Receive Date: 20250623
  Receipt Date: 20250623
  Transmission Date: 20250717
  Serious: Yes (Other)
  Sender: TEVA
  Company Number: None

PATIENT
  Age: 40 Year
  Sex: Male

DRUGS (1)
  1. LEVOFLOXACIN [Suspect]
     Active Substance: LEVOFLOXACIN
     Indication: Respiratory tract infection
     Dosage: 7 TABLETS
     Route: 065
     Dates: start: 20250404, end: 20250406

REACTIONS (1)
  - Seizure [Recovered/Resolved]

NARRATIVE: CASE EVENT DATE: 20250406
